FAERS Safety Report 5766076-4 (Version None)
Quarter: 2008Q2

REPORT INFORMATION
  Report Type: 
  Country: None (occurrence: None)
  Receive Date: 20080609
  Receipt Date: 20080212
  Transmission Date: 20081010
  Serious: No
  Sender: FDA-Public Use
  Company Number: 002#1#2008-00045

PATIENT
  Age: 55 Year
  Sex: Male
  Weight: 91.173 kg

DRUGS (8)
  1. NEUPRO [Suspect]
     Indication: PARKINSON'S DISEASE
     Dosage: 6MG/24H, 1 IN 1 D, TRANSDERMAL
     Route: 062
     Dates: start: 20070901, end: 20071204
  2. LORAZEPAM [Concomitant]
  3. AMANTADINE HCL [Concomitant]
  4. ZOLOFT [Concomitant]
  5. COMTAN [Concomitant]
  6. SINEMET [Concomitant]
  7. AZILECT [Concomitant]
  8. APOKYN [Concomitant]

REACTIONS (3)
  - APPLICATION SITE RASH [None]
  - APPLICATION SITE REACTION [None]
  - RASH [None]
